FAERS Safety Report 12635600 (Version 1)
Quarter: 2016Q3

REPORT INFORMATION
  Report Type: Spontaneous
  Country: FR (occurrence: FR)
  Receive Date: 20160809
  Receipt Date: 20160809
  Transmission Date: 20161109
  Serious: Yes (Other)
  Sender: FDA-Public Use
  Company Number: FR-ROCHE-1807844

PATIENT
  Age: 74 Year
  Sex: Male

DRUGS (8)
  1. MABTHERA [Suspect]
     Active Substance: RITUXIMAB
     Indication: RHEUMATOID ARTHRITIS
     Route: 041
     Dates: start: 201201
  2. CANDESARTAN CILEXETIL. [Concomitant]
     Active Substance: CANDESARTAN CILEXETIL
  3. CORTANCYL [Concomitant]
     Active Substance: PREDNISONE
  4. CIALIS [Concomitant]
     Active Substance: TADALAFIL
  5. HEMIGOXINE NATIVELLE [Concomitant]
     Active Substance: DIGOXIN
     Route: 048
  6. METHOTREXATE. [Concomitant]
     Active Substance: METHOTREXATE
  7. PREVISCAN (FRANCE) [Concomitant]
     Active Substance: FLUINDIONE
     Route: 048
  8. FLECAINE [Concomitant]
     Active Substance: FLECAINIDE

REACTIONS (1)
  - Arrhythmia [Not Recovered/Not Resolved]

NARRATIVE: CASE EVENT DATE: 201301
